FAERS Safety Report 7318632-X (Version None)
Quarter: 2011Q1

REPORT INFORMATION
  Report Type: 
  Country: None (occurrence: None)
  Receive Date: 20110223
  Receipt Date: 20110223
  Transmission Date: 20110831
  Serious: Yes (Death)
  Sender: FDA-Public Use
  Company Number: None

PATIENT
  Age: 23 Year
  Sex: Female
  Weight: 49.8957 kg

DRUGS (1)
  1. CYMBALTA [Suspect]
     Indication: DEPRESSION
     Dosage: 1 1 PO
     Route: 048

REACTIONS (6)
  - ARTERIAL INJURY [None]
  - ABNORMAL BEHAVIOUR [None]
  - WOUND [None]
  - UNRESPONSIVE TO STIMULI [None]
  - TRANCE [None]
  - INTENTIONAL SELF-INJURY [None]
